FAERS Safety Report 17749214 (Version 1)
Quarter: 2020Q2

REPORT INFORMATION
  Report Type: Spontaneous
  Country: US (occurrence: US)
  Receive Date: 20200505
  Receipt Date: 20200505
  Transmission Date: 20200714
  Serious: Yes (Other)
  Sender: FDA-Public Use
  Company Number: US-GLAND PHARMA LIMITED-2083527

PATIENT
  Age: 69 Year
  Sex: Female

DRUGS (2)
  1. AMIODARONE HYDROCHLORIDE. [Suspect]
     Active Substance: AMIODARONE HYDROCHLORIDE
     Indication: ATRIAL FIBRILLATION
  2. CHLORTHALIDONE. [Suspect]
     Active Substance: CHLORTHALIDONE

REACTIONS (2)
  - Acute kidney injury [Recovered/Resolved]
  - Lupus-like syndrome [Recovered/Resolved]
